FAERS Safety Report 16681514 (Version 1)
Quarter: 2019Q3

REPORT INFORMATION
  Report Type: Spontaneous
  Country: US (occurrence: US)
  Receive Date: 20190808
  Receipt Date: 20190808
  Transmission Date: 20191004
  Serious: No
  Sender: FDA-Public Use
  Company Number: US-MACLEODS PHARMACEUTICALS US LTD-MAC2019022498

PATIENT

DRUGS (2)
  1. GABAPENTIN. [Concomitant]
     Active Substance: GABAPENTIN
     Indication: NEUROPATHY PERIPHERAL
     Dosage: UNK
     Route: 065
  2. IBANDRONATE TABLET 150MG [Suspect]
     Active Substance: IBANDRONATE SODIUM
     Indication: OSTEOPOROSIS
     Dosage: 150 MILLIGRAM, ONE TIME A MONTH FOR 3 MONTH
     Route: 048

REACTIONS (16)
  - Influenza like illness [Recovered/Resolved]
  - Malaise [Recovered/Resolved]
  - Asthenia [Not Recovered/Not Resolved]
  - Arthralgia [Recovered/Resolved]
  - Muscle swelling [Recovered/Resolved]
  - Feeling abnormal [Recovered/Resolved]
  - Sinusitis [Recovered/Resolved]
  - Joint swelling [Recovered/Resolved]
  - Abdominal pain upper [Recovered/Resolved]
  - Diarrhoea [Recovered/Resolved]
  - Myalgia [Recovered/Resolved]
  - Loss of personal independence in daily activities [Recovered/Resolved]
  - Peripheral swelling [Recovered/Resolved]
  - Limb injury [Recovered/Resolved]
  - Headache [Recovered/Resolved]
  - Pain in extremity [Recovered/Resolved]

NARRATIVE: CASE EVENT DATE: 2019
